FAERS Safety Report 7383853-7 (Version None)
Quarter: 2011Q1

REPORT INFORMATION
  Report Type: 
  Country: None (occurrence: None)
  Receive Date: 20110330
  Receipt Date: 20110317
  Transmission Date: 20110831
  Serious: Yes (Other)
  Sender: FDA-Public Use
  Company Number: US-BAYER-2011-024215

PATIENT
  Sex: Male

DRUGS (1)
  1. AVELOX [Suspect]
     Dosage: UNK
     Route: 048
     Dates: start: 20110301

REACTIONS (2)
  - NERVOUS SYSTEM DISORDER [None]
  - DIZZINESS [None]
